FAERS Safety Report 25007912 (Version 1)
Quarter: 2025Q1

REPORT INFORMATION
  Report Type: Spontaneous
  Country: US (occurrence: US)
  Receive Date: 20250225
  Receipt Date: 20250225
  Transmission Date: 20250409
  Serious: No
  Sender: CHATTEM
  Company Number: US-OPELLA-2025OHG004987

PATIENT
  Sex: Female

DRUGS (1)
  1. ALLEGRA ALLERGY [Suspect]
     Active Substance: FEXOFENADINE HYDROCHLORIDE
     Indication: Product used for unknown indication
     Route: 065
     Dates: start: 20250220

REACTIONS (2)
  - Wrong dose [Unknown]
  - No adverse event [Unknown]

NARRATIVE: CASE EVENT DATE: 20250220
